FAERS Safety Report 7134545-0 (Version None)
Quarter: 2010Q4

REPORT INFORMATION
  Report Type: 
  Country: None (occurrence: None)
  Receive Date: 20101130
  Receipt Date: 20101130
  Transmission Date: 20110411
  Serious: Yes (Other)
  Sender: FDA-Public Use
  Company Number: None

PATIENT
  Sex: Female
  Weight: 59.8748 kg

DRUGS (2)
  1. ZYRTEC-D 12 HOUR [Suspect]
     Indication: SEASONAL ALLERGY
     Dosage: 1 TABLET ONCE PER NIGHT PO
     Route: 048
  2. ZYRTEC-D 12 HOUR [Suspect]
     Indication: SINUS DISORDER
     Dosage: 1 TABLET ONCE PER NIGHT PO
     Route: 048

REACTIONS (2)
  - INFLUENZA LIKE ILLNESS [None]
  - PRURITUS [None]
